FAERS Safety Report 15827855 (Version 1)
Quarter: 2019Q1

REPORT INFORMATION
  Report Type: Spontaneous
  Country: NL (occurrence: NL)
  Receive Date: 20190115
  Receipt Date: 20190115
  Transmission Date: 20190417
  Serious: Yes (Other)
  Sender: FDA-Public Use
  Company Number: NL-MYLANLABS-2019M1002882

PATIENT
  Age: 60 Year
  Sex: Female
  Weight: 57 kg

DRUGS (3)
  1. BISOPROLOL [Concomitant]
     Active Substance: BISOPROLOL
     Dosage: UNK
  2. VALSARTAN. [Concomitant]
     Active Substance: VALSARTAN
     Dosage: UNK
  3. NATRIUMCROMOGLICAAT MYLAN 20 MG/ML, OOGDRUPPELS [Suspect]
     Active Substance: CROMOLYN SODIUM
     Indication: SEASONAL ALLERGY
     Dosage: 3XD 1DRUPPEL
     Route: 047
     Dates: start: 20180510, end: 20180519

REACTIONS (3)
  - Allergic reaction to excipient [Recovering/Resolving]
  - Conjunctival oedema [Recovering/Resolving]
  - Angioedema [Recovering/Resolving]

NARRATIVE: CASE EVENT DATE: 20180519
